FAERS Safety Report 25664637 (Version 1)
Quarter: 2025Q3

REPORT INFORMATION
  Report Type: Spontaneous
  Country: CN (occurrence: CN)
  Receive Date: 20250811
  Receipt Date: 20250811
  Transmission Date: 20251020
  Serious: Yes (Life-Threatening, Hospitalization)
  Sender: BAYER HEALTHCARE PHARMACEUTICALS INC.
  Company Number: CN-BAYER-2025A106280

PATIENT
  Age: 36 Year
  Sex: Female
  Weight: 46 kg

DRUGS (1)
  1. YAZ [Suspect]
     Active Substance: DROSPIRENONE\ETHINYL ESTRADIOL
     Indication: Uterine polyp
     Dosage: 1 DF, QD
     Route: 048
     Dates: start: 20250616, end: 20250801

REACTIONS (15)
  - Pulmonary embolism [Recovering/Resolving]
  - Dyspnoea [None]
  - Unresponsive to stimuli [Recovering/Resolving]
  - Chest discomfort [None]
  - Dizziness [None]
  - Palpitations [None]
  - Tremor [None]
  - Hyperhidrosis [None]
  - Tachypnoea [Recovering/Resolving]
  - Peripheral vein thrombosis [Recovering/Resolving]
  - Oedema peripheral [None]
  - Muscle spasms [None]
  - Cough [Recovering/Resolving]
  - Product prescribing issue [None]
  - Product use in unapproved indication [None]

NARRATIVE: CASE EVENT DATE: 20250616
